FAERS Safety Report 10222011 (Version 1)
Quarter: 2014Q2

REPORT INFORMATION
  Report Type: Spontaneous
  Country: SA (occurrence: SA)
  Receive Date: 20140606
  Receipt Date: 20140606
  Transmission Date: 20141212
  Serious: No
  Sender: FDA-Public Use
  Company Number: SA-BIOMARINAP-SA-2014-102495

PATIENT
  Sex: Male
  Weight: 13.5 kg

DRUGS (3)
  1. NAGLAZYME [Suspect]
     Indication: PRODUCT USED FOR UNKNOWN INDICATION
     Dosage: 15 MG, QW
     Route: 041
     Dates: start: 20130319
  2. LORATADINE [Concomitant]
     Indication: PREMEDICATION
  3. PARACETAMOL [Concomitant]
     Indication: PREMEDICATION

REACTIONS (3)
  - Oxygen saturation decreased [Recovering/Resolving]
  - Laziness [Recovering/Resolving]
  - Somnolence [Recovering/Resolving]
